FAERS Safety Report 6444216-1 (Version None)
Quarter: 2009Q4

REPORT INFORMATION
  Report Type: 
  Country: None (occurrence: None)
  Receive Date: 20091118
  Receipt Date: 20091112
  Transmission Date: 20100525
  Serious: Yes (Death, Hospitalization)
  Sender: FDA-Public Use
  Company Number: SE-ROCHE-659945

PATIENT

DRUGS (2)
  1. CAPECITABINE [Suspect]
     Dosage: DAY 1-14 EVERY 3 WEEKS; ROUTE AND DOSE PER PROTOCOL
     Route: 048
  2. TAXOTERE [Suspect]
     Dosage: INFUSION ON CYCLE DAY 1, 8 AND 15 OR CYCLE DAY 1 AND 8 IN AN ALTERNATING 3 WEEKLY SCHEDULE
     Route: 048

REACTIONS (1)
  - TUMOUR HAEMORRHAGE [None]
